FAERS Safety Report 7865166-X (Version None)
Quarter: 2011Q4

REPORT INFORMATION
  Report Type: 
  Country: None (occurrence: None)
  Receive Date: 20111028
  Receipt Date: 20101025
  Transmission Date: 20120403
  Serious: No
  Sender: FDA-Public Use
  Company Number: US-GLAXOSMITHKLINE-A0888654A

PATIENT
  Sex: Male

DRUGS (7)
  1. ADVAIR DISKUS 100/50 [Suspect]
     Indication: BRONCHITIS
     Dosage: 1PUFF AT NIGHT
     Route: 055
     Dates: start: 20090101
  2. ERYTHROMYCIN [Concomitant]
  3. TRAZODONE HYDROCHLORIDE [Concomitant]
  4. CRESTOR [Concomitant]
  5. TRICOR [Concomitant]
  6. CALCIUM CARBONATE [Concomitant]
  7. FISH OIL [Concomitant]

REACTIONS (4)
  - PRODUCT QUALITY ISSUE [None]
  - CHEST DISCOMFORT [None]
  - DYSPNOEA [None]
  - PRODUCTIVE COUGH [None]
